FAERS Safety Report 5005312-9 (Version None)
Quarter: 2006Q2

REPORT INFORMATION
  Report Type: 
  Country: None (occurrence: None)
  Receive Date: 20060518
  Receipt Date: 20060320
  Transmission Date: 20061013
  Serious: Yes (Life-Threatening, Hospitalization)
  Sender: FDA-Public Use
  Company Number: DE-GLAXOSMITHKLINE-D0049118A

PATIENT
  Age: 60 Year
  Sex: Female

DRUGS (3)
  1. QUILONUM RETARD [Suspect]
     Dosage: 1350MG PER DAY
     Route: 048
     Dates: start: 19810101, end: 20050902
  2. CIPRAMIL [Suspect]
     Dosage: 40MG PER DAY
     Route: 048
     Dates: start: 20050715, end: 20050902
  3. SAROTEN [Suspect]
     Dosage: 10MG PER DAY
     Route: 048
     Dates: start: 20050801, end: 20050902

REACTIONS (20)
  - BALANCE DISORDER [None]
  - BODY TEMPERATURE INCREASED [None]
  - BRADYPHRENIA [None]
  - COGNITIVE DISORDER [None]
  - DISORIENTATION [None]
  - DRUG INTERACTION [None]
  - DYSARTHRIA [None]
  - DYSPHAGIA [None]
  - GAIT DISTURBANCE [None]
  - HYPERREFLEXIA [None]
  - HYPERTENSIVE CRISIS [None]
  - HYPOKINESIA [None]
  - LEUKOCYTOSIS [None]
  - MICTURITION DISORDER [None]
  - NEUROMYOPATHY [None]
  - POLLAKIURIA [None]
  - RESTLESS LEGS SYNDROME [None]
  - SEROTONIN SYNDROME [None]
  - STUPOR [None]
  - TREMOR [None]
